FAERS Safety Report 15688925 (Version 1)
Quarter: 2018Q4

REPORT INFORMATION
  Report Type: Spontaneous
  Country: US (occurrence: US)
  Receive Date: 20181205
  Receipt Date: 20181205
  Transmission Date: 20190205
  Serious: No
  Sender: FDA-Public Use
  Company Number: US-JNJFOC-20181113678

PATIENT
  Sex: Female

DRUGS (1)
  1. ORTHO NOVUM 1/35 [Suspect]
     Active Substance: ETHINYL ESTRADIOL\NORETHINDRONE
     Indication: CHEMICAL CONTRACEPTION
     Route: 048
     Dates: start: 20181105

REACTIONS (2)
  - Inappropriate schedule of product administration [Unknown]
  - Product label confusion [Unknown]

NARRATIVE: CASE EVENT DATE: 20181105
